FAERS Safety Report 17007952 (Version 1)
Quarter: 2019Q4

REPORT INFORMATION
  Report Type: Spontaneous
  Country: US (occurrence: US)
  Receive Date: 20191108
  Receipt Date: 20191108
  Transmission Date: 20200122
  Serious: No
  Sender: FDA-Public Use
  Company Number: US-AMGEN-USASP2019183008

PATIENT
  Age: 67 Year
  Sex: Female
  Weight: 49.9 kg

DRUGS (3)
  1. RETACRIT [EPOETIN ZETA] [Suspect]
     Active Substance: ERYTHROPOIETIN
     Indication: NEPHROGENIC ANAEMIA
     Dosage: UNK UNK, QMO
     Route: 065
  2. RETACRIT [EPOETIN ZETA] [Suspect]
     Active Substance: ERYTHROPOIETIN
     Dosage: UNK UNK, QWK
     Route: 065
  3. EPOGEN [Suspect]
     Active Substance: ERYTHROPOIETIN
     Indication: NEPHROGENIC ANAEMIA
     Dosage: UNK
     Route: 065

REACTIONS (1)
  - Hypertension [Unknown]
